FAERS Safety Report 5384241-5 (Version None)
Quarter: 2007Q3

REPORT INFORMATION
  Report Type: 
  Country: None (occurrence: None)
  Receive Date: 20070703
  Receipt Date: 20060516
  Transmission Date: 20080115
  Serious: Yes (Hospitalization)
  Sender: FDA-Public Use
  Company Number: 2005-BP-13969BP

PATIENT
  Age: 49 Year
  Sex: Female

DRUGS (3)
  1. MIRAPEX [Suspect]
     Indication: RESTLESS LEGS SYNDROME
     Dosage: SEE IMAGE
     Dates: start: 20020430, end: 20030610
  2. MIRAPEX [Suspect]
     Indication: RESTLESS LEGS SYNDROME
     Dosage: SEE IMAGE
     Dates: start: 20030610, end: 20030925
  3. MIRAPEX [Suspect]
     Indication: RESTLESS LEGS SYNDROME
     Dosage: SEE IMAGE
     Dates: start: 20030925, end: 20050301

REACTIONS (13)
  - ANXIETY [None]
  - APATHY [None]
  - DEPENDENCE [None]
  - DEPRESSED MOOD [None]
  - DEPRESSION [None]
  - ECONOMIC PROBLEM [None]
  - EMOTIONAL DISTRESS [None]
  - FEAR [None]
  - FEELING GUILTY [None]
  - GAMBLING [None]
  - OBSESSIVE-COMPULSIVE DISORDER [None]
  - PAIN [None]
  - TENSION [None]
